FAERS Safety Report 23859346 (Version 1)
Quarter: 2024Q2

REPORT INFORMATION
  Report Type: Report from Study
  Country: JP (occurrence: JP)
  Receive Date: 20240515
  Receipt Date: 20240515
  Transmission Date: 20240716
  Serious: Yes (Other)
  Sender: FDA-Public Use
  Company Number: JP-ARGENX-2023-ARGX-JP003561AA

PATIENT

DRUGS (11)
  1. VYVGART [Suspect]
     Active Substance: EFGARTIGIMOD ALFA-FCAB
     Indication: Myasthenia gravis
     Dosage: 400 MG
     Route: 042
     Dates: start: 20220728, end: 20220818
  2. VYVGART [Suspect]
     Active Substance: EFGARTIGIMOD ALFA-FCAB
     Dosage: 400 MG
     Route: 042
     Dates: start: 20221109, end: 20221201
  3. VYVGART [Suspect]
     Active Substance: EFGARTIGIMOD ALFA-FCAB
     Dosage: 400 MG
     Route: 042
     Dates: start: 20230302, end: 20230323
  4. VYVGART [Suspect]
     Active Substance: EFGARTIGIMOD ALFA-FCAB
     Dosage: 400 MG
     Route: 042
     Dates: start: 20230602, end: 20230622
  5. VYVGART [Suspect]
     Active Substance: EFGARTIGIMOD ALFA-FCAB
     Dosage: 400 MG
     Route: 042
     Dates: start: 20230720, end: 20230810
  6. VYVGART [Suspect]
     Active Substance: EFGARTIGIMOD ALFA-FCAB
     Dosage: UNK
     Route: 042
     Dates: start: 20230906, end: 20230927
  7. PREDONINE [Concomitant]
     Active Substance: PREDNISOLONE
     Indication: Myasthenia gravis
     Dosage: 20 MG
     Route: 048
     Dates: start: 20220526, end: 20220825
  8. PREDONINE [Concomitant]
     Active Substance: PREDNISOLONE
     Dosage: 15 MG
     Route: 048
     Dates: start: 20220826, end: 20221201
  9. PREDONINE [Concomitant]
     Active Substance: PREDNISOLONE
     Dosage: 10 MG
     Route: 048
     Dates: start: 20221202
  10. SOLU-MEDROL [Concomitant]
     Active Substance: METHYLPREDNISOLONE SODIUM SUCCINATE
     Indication: Myasthenia gravis
     Dosage: 500 MG
     Route: 041
     Dates: start: 20221201, end: 20221201
  11. ALENDRONATE [Concomitant]
     Active Substance: ALENDRONATE SODIUM
     Indication: Prophylaxis
     Dosage: 35 MG/WEEK
     Route: 048
     Dates: start: 20220304

REACTIONS (2)
  - Pathological fracture [Unknown]
  - Osteoporosis [Unknown]

NARRATIVE: CASE EVENT DATE: 20231017
